FAERS Safety Report 8448237-9 (Version None)
Quarter: 2012Q2

REPORT INFORMATION
  Report Type: 
  Country: None (occurrence: None)
  Receive Date: 20120619
  Receipt Date: 20120612
  Transmission Date: 20120825
  Serious: Yes (Hospitalization, Other)
  Sender: FDA-Public Use
  Company Number: PHHY2012JP044727

PATIENT
  Age: 33 Year
  Sex: Female

DRUGS (3)
  1. CYCLOSPORINE [Suspect]
     Indication: FOCAL SEGMENTAL GLOMERULOSCLEROSIS
     Route: 048
  2. PREDNISOLONE [Concomitant]
     Indication: FOCAL SEGMENTAL GLOMERULOSCLEROSIS
     Dosage: 60 MG, DAILY
     Route: 048
  3. MIZORIBINE [Concomitant]
     Indication: FOCAL SEGMENTAL GLOMERULOSCLEROSIS
     Route: 048

REACTIONS (10)
  - PAIN [None]
  - SENSORY DISTURBANCE [None]
  - CRYPTOCOCCOSIS [None]
  - PURULENT DISCHARGE [None]
  - SKIN ULCER [None]
  - ERYTHEMA [None]
  - CEREBRAL DISORDER [None]
  - BLISTER [None]
  - OEDEMA [None]
  - HYPOAESTHESIA [None]
